FAERS Safety Report 7880765-7 (Version None)
Quarter: 2011Q4

REPORT INFORMATION
  Report Type: 
  Country: None (occurrence: None)
  Receive Date: 20111101
  Receipt Date: 20111017
  Transmission Date: 20120403
  Serious: Yes (Other)
  Sender: FDA-Public Use
  Company Number: CA-WATSON-2011-17411

PATIENT
  Age: 68 Year
  Sex: Female

DRUGS (3)
  1. RIFAMPIN [Suspect]
     Indication: BRUCELLOSIS
  2. GENTAMICIN SULFATE [Suspect]
     Indication: BRUCELLOSIS
     Dosage: 3.5 MG/KG, DAILY
     Route: 042
  3. DOXYCYCLINE [Suspect]
     Indication: BRUCELLOSIS
     Dosage: 100 MG, BID
     Route: 048

REACTIONS (2)
  - NEPHROPATHY TOXIC [None]
  - VOMITING [None]
